FAERS Safety Report 16131567 (Version 1)
Quarter: 2019Q1

REPORT INFORMATION
  Report Type: Spontaneous
  Country: US (occurrence: US)
  Receive Date: 20190225
  Receipt Date: 20190225
  Transmission Date: 20190418
  Serious: Yes (Hospitalization)
  Sender: FDA-Public Use
  Company Number: None

PATIENT
  Age: 88 Year
  Sex: Female

DRUGS (7)
  1. CAPECITABINE 500 MG TAB [Suspect]
     Active Substance: CAPECITABINE
     Indication: GASTRIC CANCER
     Route: 048
     Dates: start: 20181015
  2. XELODA [Concomitant]
     Active Substance: CAPECITABINE
  3. SYNTHROID [Concomitant]
     Active Substance: LEVOTHYROXINE SODIUM
  4. PROTONIX [Concomitant]
     Active Substance: PANTOPRAZOLE SODIUM
  5. DICYCLOMINE HCI [Concomitant]
  6. DIAZEPAM. [Concomitant]
     Active Substance: DIAZEPAM
  7. METOPROLOL TARTRATE. [Concomitant]
     Active Substance: METOPROLOL TARTRATE

REACTIONS (17)
  - Dysphagia [None]
  - Nail discolouration [None]
  - Back pain [None]
  - Gastric haemorrhage [None]
  - Fatigue [None]
  - Skin fissures [None]
  - Weight decreased [None]
  - Hyperhidrosis [None]
  - Haematochezia [None]
  - Intestinal haemorrhage [None]
  - Insomnia [None]
  - Dizziness [None]
  - Skin discolouration [None]
  - Diarrhoea [None]
  - Abdominal pain upper [None]
  - Blister [None]
  - Faeces discoloured [None]
